FAERS Safety Report 7268876 (Version 5)
Quarter: 2013Q1

REPORT INFORMATION
  Report Type: Spontaneous
  Country: GB (occurrence: GB)
  Receive Date: 20100202
  Receipt Date: 20130118
  Transmission Date: 20140127
  Serious: Yes (Hospitalization, Other)
  Sender: FDA-Public Use
  Company Number: PHHY2010GB04605

PATIENT
  Age: 67 Year
  Sex: Male

DRUGS (3)
  1. CLOZARIL [Suspect]
     Indication: SCHIZOPHRENIA
     Dosage: 450 MG, UNK
     Route: 048
     Dates: start: 20040106, end: 20100118
  2. CLOZARIL [Suspect]
     Dates: end: 20100119
  3. ADALAT [Concomitant]
     Indication: HYPERTENSION
     Dosage: 30 MG, UNK
     Route: 048

REACTIONS (9)
  - Small intestinal obstruction [Unknown]
  - Faecal vomiting [Unknown]
  - Vomiting [Unknown]
  - Constipation [Recovered/Resolved]
  - Abdominal pain [Unknown]
  - Diarrhoea [Unknown]
  - Mental disorder [Unknown]
  - Neutrophil count increased [Unknown]
  - White blood cell count increased [Unknown]
